FAERS Safety Report 24262867 (Version 1)
Quarter: 2024Q3

REPORT INFORMATION
  Report Type: Spontaneous
  Country: EG (occurrence: EG)
  Receive Date: 20240829
  Receipt Date: 20240829
  Transmission Date: 20241017
  Serious: Yes (Hospitalization)
  Sender: BAXTER
  Company Number: EG-BAXTER-2024BAX023439

PATIENT
  Age: 8 Year
  Sex: Female

DRUGS (4)
  1. MESNA [Suspect]
     Active Substance: MESNA
     Dosage: 3600 MG (VIAL)
     Route: 042
     Dates: start: 20240727, end: 20240728
  2. MESNA [Suspect]
     Active Substance: MESNA
     Dosage: 2400 MG (VIAL)
     Route: 042
     Dates: start: 20240802, end: 20240803
  3. CYCLOPHOSPHAMIDE [Suspect]
     Active Substance: CYCLOPHOSPHAMIDE
     Dosage: 2400 MG
     Route: 042
     Dates: start: 20240727, end: 20240728
  4. CYCLOPHOSPHAMIDE [Suspect]
     Active Substance: CYCLOPHOSPHAMIDE
     Dosage: 1600 MG
     Route: 042
     Dates: start: 20240802, end: 20240803

REACTIONS (1)
  - Haematuria [Recovering/Resolving]

NARRATIVE: CASE EVENT DATE: 20240808
